FAERS Safety Report 17514311 (Version 2)
Quarter: 2020Q1

REPORT INFORMATION
  Report Type: Spontaneous
  Country: DE (occurrence: DE)
  Receive Date: 20200307
  Receipt Date: 20200311
  Transmission Date: 20200409
  Serious: Yes (Other)
  Sender: FDA-Public Use
  Company Number: DE-AUROBINDO-AUR-APL-2020-010948

PATIENT
  Age: 57 Year
  Sex: Female

DRUGS (6)
  1. CYCLOPHOSPHAMIDE. [Concomitant]
     Active Substance: CYCLOPHOSPHAMIDE
     Indication: LYMPHANGIOSARCOMA
     Dosage: ADJUVANT THERAPY
     Route: 048
  2. MELPHALAN. [Suspect]
     Active Substance: MELPHALAN
     Indication: LYMPHOEDEMA
     Dosage: 24 MILLIGRAM (HYPERTHERMIC ISOLATED LIMB PERFUSION)
     Route: 065
     Dates: start: 201607
  3. MELPHALAN. [Suspect]
     Active Substance: MELPHALAN
     Indication: LYMPHANGIOSARCOMA
  4. PACLITAXEL. [Suspect]
     Active Substance: PACLITAXEL
     Indication: LYMPHANGIOSARCOMA
  5. PREDNISOLONE. [Concomitant]
     Active Substance: PREDNISOLONE
     Indication: LYMPHANGIOSARCOMA
     Dosage: ADJUVANT THERAPY
     Route: 048
  6. PACLITAXEL. [Suspect]
     Active Substance: PACLITAXEL
     Indication: LYMPHOEDEMA
     Dosage: 80 MILLIGRAM/SQ. METER EVERY WEEK
     Route: 065
     Dates: start: 201601

REACTIONS (2)
  - Drug ineffective [Unknown]
  - Product use in unapproved indication [Unknown]
